FAERS Safety Report 18344049 (Version 1)
Quarter: 2020Q4

REPORT INFORMATION
  Report Type: Spontaneous
  Country: DE (occurrence: DE)
  Receive Date: 20201005
  Receipt Date: 20201005
  Transmission Date: 20210114
  Serious: Yes (Other)
  Sender: FDA-Public Use
  Company Number: DE-MYLANLABS-2020M1083003

PATIENT
  Age: 38 Year
  Sex: Female

DRUGS (1)
  1. PREGABALIN. [Suspect]
     Active Substance: PREGABALIN
     Indication: ANXIETY
     Dosage: UNK UNK, QD, UP TO 800 MG
     Route: 065

REACTIONS (3)
  - Euphoric mood [Unknown]
  - Drug abuse [Unknown]
  - Drug withdrawal syndrome [Unknown]
